FAERS Safety Report 7953300-2 (Version None)
Quarter: 2011Q4

REPORT INFORMATION
  Report Type: 
  Country: None (occurrence: None)
  Receive Date: 20111202
  Receipt Date: 20111118
  Transmission Date: 20120403
  Serious: Yes (Hospitalization)
  Sender: FDA-Public Use
  Company Number: FR-MYLANLABS-2011S1024337

PATIENT
  Age: 54 Year
  Sex: Female

DRUGS (15)
  1. PROGRAF [Suspect]
     Indication: IMMUNOSUPPRESSANT DRUG THERAPY
  2. FLUINDIONE [Concomitant]
     Indication: VENOUS THROMBOSIS
     Route: 048
  3. FLUCONAZOLE [Concomitant]
     Indication: FUNGAL OESOPHAGITIS
     Route: 065
     Dates: start: 20080925, end: 20080930
  4. CELIPROLOL [Concomitant]
     Indication: HYPERTENSION
     Route: 065
  5. REPAGLINIDE [Concomitant]
     Indication: TYPE 2 DIABETES MELLITUS
     Route: 065
  6. MYCOPHENOLATE MOFETIL [Suspect]
     Indication: IMMUNOSUPPRESSANT DRUG THERAPY
     Route: 065
     Dates: end: 20090213
  7. PREDNISONE TAB [Suspect]
     Indication: IMMUNOSUPPRESSANT DRUG THERAPY
     Route: 065
  8. AMPHOTERICIN B [Suspect]
     Dosage: 10 MG/KG/DAY
     Route: 042
     Dates: end: 20091101
  9. AMLODIPINE [Concomitant]
     Indication: HYPERTENSION
     Route: 065
  10. AMOXICILLIN [Concomitant]
     Route: 065
     Dates: start: 20090101, end: 20090126
  11. TACROLIMUS [Suspect]
     Indication: IMMUNOSUPPRESSANT DRUG THERAPY
     Route: 048
  12. AMPHOTERICIN B [Suspect]
     Indication: ZYGOMYCOSIS
     Dosage: INITIAL DOSAGE UNKNOWN
     Route: 048
     Dates: end: 20091101
  13. VALGANCICLOVIR [Concomitant]
     Route: 065
  14. CIPROFLOXACIN [Concomitant]
     Route: 065
     Dates: start: 20090126
  15. PIPERACILLIN AND TAZOBACTAM [Concomitant]
     Route: 065
     Dates: start: 20090126

REACTIONS (3)
  - ZYGOMYCOSIS [None]
  - RENAL FAILURE [None]
  - TYPE 2 DIABETES MELLITUS [None]
